FAERS Safety Report 16366587 (Version 1)
Quarter: 2019Q2

REPORT INFORMATION
  Report Type: Spontaneous
  Country: US (occurrence: US)
  Receive Date: 20190529
  Receipt Date: 20190529
  Transmission Date: 20190711
  Serious: No
  Sender: FDA-Public Use
  Company Number: US-BAUSCH-BL-2019-014552

PATIENT
  Age: 64 Year
  Sex: Male
  Weight: 111.23 kg

DRUGS (4)
  1. SOOTHE XP [Suspect]
     Active Substance: LIGHT MINERAL OIL\MINERAL OIL
     Indication: DRY EYE
     Route: 031
     Dates: start: 20190514, end: 20190514
  2. ALAWAY [Suspect]
     Active Substance: KETOTIFEN FUMARATE
     Indication: EYE IRRITATION
     Route: 031
     Dates: start: 20190512
  3. SOOTHE XP [Suspect]
     Active Substance: LIGHT MINERAL OIL\MINERAL OIL
     Indication: EYE IRRITATION
     Route: 031
     Dates: start: 20190515, end: 20190515
  4. SOOTHE HYDRATION [Suspect]
     Active Substance: POVIDONE
     Indication: EYE IRRITATION
     Dosage: THREE TO FOUR TIMES DAILY
     Route: 031
     Dates: start: 20190512

REACTIONS (2)
  - Eye irritation [Unknown]
  - Eye pruritus [Unknown]

NARRATIVE: CASE EVENT DATE: 20190514
